FAERS Safety Report 4542190-6 (Version None)
Quarter: 2004Q4

REPORT INFORMATION
  Report Type: 
  Country: None (occurrence: None)
  Receive Date: 20041227
  Receipt Date: 20041220
  Transmission Date: 20050328
  Serious: Yes (Hospitalization)
  Sender: FDA-Public Use
  Company Number: HQWYE132021DEC04

PATIENT
  Age: 30 Year
  Sex: Male

DRUGS (1)
  1. RAPAMUNE [Suspect]
     Indication: PROPHYLAXIS AGAINST TRANSPLANT REJECTION
     Dosage: 5 MG 1X PER 1 DAY, ORAL
     Route: 048
     Dates: start: 20041207

REACTIONS (9)
  - ABDOMINAL PAIN [None]
  - ABSCESS [None]
  - BLOOD POTASSIUM INCREASED [None]
  - DIARRHOEA [None]
  - ELECTROCARDIOGRAM QRS COMPLEX PROLONGED [None]
  - PANCREATITIS [None]
  - ULCER [None]
  - VOMITING [None]
  - WHITE BLOOD CELL COUNT INCREASED [None]
